FAERS Safety Report 12660329 (Version 1)
Quarter: 2016Q3

REPORT INFORMATION
  Report Type: Spontaneous
  Country: US (occurrence: US)
  Receive Date: 20160817
  Receipt Date: 20160817
  Transmission Date: 20161109
  Serious: No
  Sender: FDA-Public Use
  Company Number: US-BAYER-2016-151520

PATIENT
  Age: 72 Year
  Sex: Female

DRUGS (6)
  1. FINACEA [Suspect]
     Active Substance: AZELAIC ACID
     Indication: ROSACEA
  2. METROGEL [Concomitant]
     Active Substance: METRONIDAZOLE
     Dosage: UNK
  3. IVERMECTIN. [Concomitant]
     Active Substance: IVERMECTIN
     Dosage: UNK
     Route: 061
  4. SUMATRIPTAN. [Concomitant]
     Active Substance: SUMATRIPTAN
     Indication: MIGRAINE
     Dosage: 100 MG, PRN
     Route: 048
  5. DENOSUMAB [Concomitant]
     Active Substance: DENOSUMAB
     Indication: OSTEOPOROSIS
     Dosage: 1 DF, EVERY 6 MONTHS
  6. SYNTHROID [Concomitant]
     Active Substance: LEVOTHYROXINE SODIUM
     Indication: THYROID OPERATION
     Dosage: 1 DF, QD

REACTIONS (3)
  - Sneezing [None]
  - Acne [None]
  - Seasonal allergy [None]
